FAERS Safety Report 7081173-1 (Version None)
Quarter: 2010Q4

REPORT INFORMATION
  Report Type: 
  Country: None (occurrence: None)
  Receive Date: 20101103
  Receipt Date: 20101026
  Transmission Date: 20110411
  Serious: Yes (Other)
  Sender: FDA-Public Use
  Company Number: GB-ROCHE-736726

PATIENT
  Sex: Female

DRUGS (2)
  1. ROACTEMRA [Suspect]
     Route: 065
  2. STATIN NOS [Concomitant]

REACTIONS (1)
  - MYOCARDIAL INFARCTION [None]
